FAERS Safety Report 17782814 (Version 1)
Quarter: 2020Q2

REPORT INFORMATION
  Report Type: Spontaneous
  Country: SK (occurrence: SK)
  Receive Date: 20200513
  Receipt Date: 20200513
  Transmission Date: 20200714
  Serious: Yes (Other)
  Sender: FDA-Public Use
  Company Number: SK-BAUSCH-BL-2020-013585

PATIENT
  Age: 64 Year
  Sex: Male

DRUGS (3)
  1. MYSIMBA [Interacting]
     Active Substance: BUPROPION HYDROCHLORIDE\NALTREXONE HYDROCHLORIDE
     Route: 065
     Dates: start: 201809
  2. METFORMIN [Suspect]
     Active Substance: METFORMIN HYDROCHLORIDE
     Indication: PRODUCT USED FOR UNKNOWN INDICATION
     Route: 065
  3. MYSIMBA [Interacting]
     Active Substance: BUPROPION HYDROCHLORIDE\NALTREXONE HYDROCHLORIDE
     Indication: WEIGHT CONTROL
     Dosage: 2 TABLETS IN MORNING AND 1 TABLET IN EVENING
     Route: 065

REACTIONS (6)
  - Dry mouth [Unknown]
  - Nonspecific reaction [Unknown]
  - Dizziness [Unknown]
  - Drug interaction [Unknown]
  - Unevaluable event [Unknown]
  - Hip arthroplasty [Unknown]

NARRATIVE: CASE EVENT DATE: 201809
